FAERS Safety Report 8947549 (Version 1)
Quarter: 2012Q4

REPORT INFORMATION
  Report Type: 
  Country: US (occurrence: US)
  Receive Date: 20121205
  Receipt Date: 20121205
  Transmission Date: 20130627
  Serious: Yes (Death, Hospitalization, Other)
  Sender: FDA-Public Use
  Company Number: US-ASTELLAS-2012US011769

PATIENT
  Sex: Female

DRUGS (1)
  1. TARCEVA [Suspect]
     Indication: PANCREATIC CARCINOMA
     Dosage: 100 mg, Unknown/D
     Route: 048
     Dates: start: 20120802

REACTIONS (3)
  - Hypercalcaemia [Unknown]
  - Metastases to liver [Unknown]
  - Malignant neoplasm progression [Fatal]
